FAERS Safety Report 8598723-6 (Version None)
Quarter: 2012Q3

REPORT INFORMATION
  Report Type: 
  Country: None (occurrence: None)
  Receive Date: 20120816
  Receipt Date: 19940623
  Transmission Date: 20120928
  Serious: Yes (Other)
  Sender: FDA-Public Use
  Company Number: US-ROCHE-1100849

PATIENT
  Age: 45 Year
  Sex: Female

DRUGS (8)
  1. ACTIVASE [Suspect]
  2. ASPIRIN [Concomitant]
     Route: 048
  3. LIDOCAINE [Concomitant]
  4. ACTIVASE [Suspect]
  5. SODIUM CHLORIDE [Concomitant]
  6. HEPARIN [Concomitant]
  7. LIDOCAINE [Concomitant]
  8. ACTIVASE [Suspect]
     Indication: ACUTE MYOCARDIAL INFARCTION
     Route: 040

REACTIONS (2)
  - VENTRICULAR EXTRASYSTOLES [None]
  - PAIN [None]
